FAERS Safety Report 19936676 (Version 1)
Quarter: 2021Q4

REPORT INFORMATION
  Report Type: Spontaneous
  Country: US (occurrence: US)
  Receive Date: 20211008
  Receipt Date: 20211008
  Transmission Date: 20220304
  Serious: No
  Sender: FDA-Public Use
  Company Number: US-SPROUT PHARMACEUTICALS, INC.-2020SP000146

PATIENT
  Age: 53 Year
  Sex: Female
  Weight: 70.82 kg

DRUGS (1)
  1. ADDYI [Suspect]
     Active Substance: FLIBANSERIN
     Indication: Libido decreased
     Route: 048
     Dates: start: 20200910, end: 20200914

REACTIONS (4)
  - Mobility decreased [Recovered/Resolved]
  - Somnolence [Recovered/Resolved]
  - Sedation [Recovered/Resolved]
  - Drug ineffective [Recovered/Resolved]

NARRATIVE: CASE EVENT DATE: 20200910
